FAERS Safety Report 8262520-1 (Version None)
Quarter: 2012Q2

REPORT INFORMATION
  Report Type: 
  Country: None (occurrence: None)
  Receive Date: 20120405
  Receipt Date: 20120329
  Transmission Date: 20120825
  Serious: Yes (Other)
  Sender: FDA-Public Use
  Company Number: JP-ASTRAZENECA-2012SE17127

PATIENT
  Age: 40 Year
  Sex: Male

DRUGS (2)
  1. MARCAINE HYDROCHLORIDE PRESERVATIVE FREE [Suspect]
     Indication: SPINAL ANAESTHESIA
     Route: 029
     Dates: start: 20120307, end: 20120307
  2. DROPERIDOL [Concomitant]
     Dosage: DOSE UNKNOWN
     Route: 065

REACTIONS (3)
  - BRADYCARDIA [None]
  - CONVULSION [None]
  - ALTERED STATE OF CONSCIOUSNESS [None]
